FAERS Safety Report 7892468-3 (Version None)
Quarter: 2011Q4

REPORT INFORMATION
  Report Type: 
  Country: None (occurrence: None)
  Receive Date: 20111104
  Receipt Date: 20111026
  Transmission Date: 20120403
  Serious: Yes (Hospitalization, Other)
  Sender: FDA-Public Use
  Company Number: JP-JNJFOC-20111012641

PATIENT
  Age: 80 Year
  Sex: Female

DRUGS (1)
  1. REMICADE [Suspect]
     Indication: RHEUMATOID ARTHRITIS
     Route: 042

REACTIONS (5)
  - SPINAL COMPRESSION FRACTURE [None]
  - ACTIVITIES OF DAILY LIVING IMPAIRED [None]
  - TUBERCULOUS PLEURISY [None]
  - DISSEMINATED TUBERCULOSIS [None]
  - DECREASED APPETITE [None]
